FAERS Safety Report 25613128 (Version 1)
Quarter: 2025Q3

REPORT INFORMATION
  Report Type: Spontaneous
  Country: US (occurrence: None)
  Receive Date: 20250726
  Receipt Date: 20250726
  Transmission Date: 20251021
  Serious: No
  Sender: FDA-CTU
  Company Number: None

PATIENT
  Age: 54 Year
  Sex: Female
  Weight: 58.95 kg

DRUGS (1)
  1. TIRZEPATIDE [Suspect]
     Active Substance: TIRZEPATIDE
     Dosage: 1 INJECTION WEEKLY SUBCUTANEOUS
     Route: 058
     Dates: start: 20250718, end: 20250725

REACTIONS (4)
  - Abdominal distension [None]
  - Ocular discomfort [None]
  - Dry eye [None]
  - Product substitution issue [None]

NARRATIVE: CASE EVENT DATE: 20250719
